FAERS Safety Report 5949915-3 (Version None)
Quarter: 2008Q4

REPORT INFORMATION
  Report Type: 
  Country: None (occurrence: None)
  Receive Date: 20081112
  Receipt Date: 20081030
  Transmission Date: 20090506
  Serious: Yes (Other)
  Sender: FDA-Public Use
  Company Number: FR-ELI_LILLY_AND_COMPANY-FR200811000064

PATIENT
  Age: 22 Year
  Sex: Male

DRUGS (2)
  1. ZYPREXA [Suspect]
     Dosage: 10 MG, DAILY (1/D)
     Route: 048
  2. ZYPREXA [Suspect]

REACTIONS (3)
  - DIARRHOEA [None]
  - EOSINOPHILIA [None]
  - VOMITING [None]
